FAERS Safety Report 8791231 (Version 1)
Quarter: 2012Q4

REPORT INFORMATION
  Report Type: Spontaneous
  Country: US (occurrence: None)
  Receive Date: 20120914
  Receipt Date: 20120914
  Transmission Date: 20130627
  Serious: Yes (Hospitalization)
  Sender: FDA-Public Use
  Company Number: None

PATIENT
  Age: 53 Year
  Sex: Female

DRUGS (2)
  1. OMNIPAQUE [Suspect]
     Route: 040
     Dates: start: 20120912
  2. OMNIPAQUE [Suspect]
     Route: 040
     Dates: start: 20120912

REACTIONS (3)
  - Dyspnoea [None]
  - Chest discomfort [None]
  - Oxygen saturation decreased [None]
